FAERS Safety Report 5956195-1 (Version None)
Quarter: 2008Q4

REPORT INFORMATION
  Report Type: 
  Country: None (occurrence: None)
  Receive Date: 20081118
  Receipt Date: 20081112
  Transmission Date: 20090506
  Serious: Yes (Hospitalization)
  Sender: FDA-Public Use
  Company Number: US-JNJFOC-20081103479

PATIENT
  Age: 14 Year
  Sex: Female

DRUGS (2)
  1. REMICADE [Suspect]
     Indication: CROHN'S DISEASE
  2. MERCAPTOPURINE [Concomitant]

REACTIONS (3)
  - HERPES OESOPHAGITIS [None]
  - OESOPHAGEAL CANDIDIASIS [None]
  - STAPHYLOCOCCAL BACTERAEMIA [None]
